FAERS Safety Report 5869763-2 (Version None)
Quarter: 2008Q3

REPORT INFORMATION
  Report Type: 
  Country: None (occurrence: None)
  Receive Date: 20080904
  Receipt Date: 20080826
  Transmission Date: 20090109
  Serious: Yes (Other)
  Sender: FDA-Public Use
  Company Number: GB-TEVA-176544ISR

PATIENT
  Age: 45 Year
  Sex: Female
  Weight: 53.98 kg

DRUGS (1)
  1. TRIMETHOPRIM [Suspect]
     Indication: URINARY TRACT INFECTION
     Route: 048
     Dates: start: 20080605, end: 20080607

REACTIONS (2)
  - VULVAL OEDEMA [None]
  - VULVAL ULCERATION [None]
